FAERS Safety Report 17964067 (Version 1)
Quarter: 2020Q2

REPORT INFORMATION
  Report Type: Spontaneous
  Country: AR (occurrence: AR)
  Receive Date: 20200630
  Receipt Date: 20200630
  Transmission Date: 20200714
  Serious: Yes (Hospitalization, Other)
  Sender: FDA-Public Use
  Company Number: AR-PFIZER INC-2020250142

PATIENT
  Age: 9 Year
  Sex: Female

DRUGS (1)
  1. GENOTROPIN [Suspect]
     Active Substance: SOMATROPIN
     Indication: FOETAL GROWTH RESTRICTION
     Dosage: 1 TO 1.4 MG DAILY 7 TIMES PER WEEK
     Dates: start: 20171029

REACTIONS (2)
  - Seizure [Unknown]
  - Epilepsy [Unknown]

NARRATIVE: CASE EVENT DATE: 202004
